FAERS Safety Report 22639868 (Version 1)
Quarter: 2023Q2

REPORT INFORMATION
  Report Type: Report from Study
  Country: US (occurrence: US)
  Receive Date: 20230626
  Receipt Date: 20230626
  Transmission Date: 20230721
  Serious: Yes (Other)
  Sender: FDA-Public Use
  Company Number: US-ABBVIE-5278128

PATIENT
  Sex: Female

DRUGS (3)
  1. SKYRIZI [Suspect]
     Active Substance: RISANKIZUMAB-RZAA
     Indication: Drug therapy
     Dosage: FORM STRENGTH 150 MILLIGRAM?WEEK 0
     Route: 058
  2. SKYRIZI [Suspect]
     Active Substance: RISANKIZUMAB-RZAA
     Dosage: FORM STRENGTH 150 MILLIGRAM
     Route: 058
     Dates: end: 202303
  3. SKYRIZI [Suspect]
     Active Substance: RISANKIZUMAB-RZAA
     Dosage: FORM STRENGTH 150 MILLIGRAM?WEEK 4
     Route: 058

REACTIONS (11)
  - Breast cancer female [Unknown]
  - Drug ineffective [Unknown]
  - Joint range of motion decreased [Unknown]
  - Weight decreased [Unknown]
  - Psoriatic arthropathy [Unknown]
  - Blood cholesterol increased [Unknown]
  - Nail infection [Unknown]
  - Hypertension [Unknown]
  - Thyroid disorder [Unknown]
  - Type 2 diabetes mellitus [Unknown]
  - Skin disorder [Unknown]

NARRATIVE: CASE EVENT DATE: 20210101
